FAERS Safety Report 6641482-4 (Version None)
Quarter: 2010Q1

REPORT INFORMATION
  Report Type: 
  Country: None (occurrence: None)
  Receive Date: 20100318
  Receipt Date: 20100315
  Transmission Date: 20100710
  Serious: Yes (Death)
  Sender: FDA-Public Use
  Company Number: TR-MERCK-1003TUR00003

PATIENT
  Age: 70 Year
  Sex: Male

DRUGS (1)
  1. PRIMAXIN [Suspect]
     Route: 041

REACTIONS (2)
  - MULTI-ORGAN FAILURE [None]
  - THROMBOCYTOPENIA [None]
